FAERS Safety Report 4947529-5 (Version None)
Quarter: 2006Q1

REPORT INFORMATION
  Report Type: 
  Country: None (occurrence: None)
  Receive Date: 20060313
  Receipt Date: 20060302
  Transmission Date: 20060701
  Serious: Yes (Hospitalization, Other)
  Sender: FDA-Public Use
  Company Number: 163-20785-05110182

PATIENT
  Age: 77 Year
  Sex: Male

DRUGS (3)
  1. THALOMID [Suspect]
     Indication: MULTIPLE MYELOMA
     Dosage: 50 MG DAILY ORAL
     Route: 048
     Dates: start: 20040901, end: 20050901
  2. GLUCOSAMINE [Concomitant]
  3. WARFARIN SODIUM [Concomitant]

REACTIONS (5)
  - BENIGN COLONIC NEOPLASM [None]
  - DEPRESSION [None]
  - NEUROPATHY PERIPHERAL [None]
  - PULMONARY EMBOLISM [None]
  - PULMONARY THROMBOSIS [None]
